FAERS Safety Report 4714717-2 (Version None)
Quarter: 2005Q3

REPORT INFORMATION
  Report Type: 
  Country: None (occurrence: None)
  Receive Date: 20050713
  Receipt Date: 20050630
  Transmission Date: 20060218
  Serious: Yes (Death, Other)
  Sender: FDA-Public Use
  Company Number: 2005096081

PATIENT
  Age: 57 Year
  Sex: Female

DRUGS (1)
  1. CELEBREX [Suspect]
     Indication: INFLAMMATION
     Dosage: 100 MG (200 MG, 1 IN 1 D),ORAL
     Route: 048
     Dates: start: 20040709

REACTIONS (1)
  - ACUTE MYOCARDIAL INFARCTION [None]
